FAERS Safety Report 11090250 (Version 1)
Quarter: 2015Q2

REPORT INFORMATION
  Report Type: Spontaneous
  Country: FR (occurrence: FR)
  Receive Date: 20150505
  Receipt Date: 20150505
  Transmission Date: 20150821
  Serious: Yes (Other)
  Sender: FDA-Public Use
  Company Number: FR-PFIZER INC-2015148544

PATIENT
  Age: 52 Year
  Sex: Female
  Weight: 60 kg

DRUGS (3)
  1. VENLAFAXINE [Suspect]
     Active Substance: VENLAFAXINE HYDROCHLORIDE
     Indication: DEPRESSION
     Dosage: 75 MG, SINGLE
     Route: 048
     Dates: start: 20150410, end: 20150410
  2. DUPHASTON [Concomitant]
     Active Substance: DYDROGESTERONE
     Dosage: 1 DF, DAILY
     Route: 048
  3. LEVOTHYROX [Concomitant]
     Active Substance: LEVOTHYROXINE
     Dosage: 1 DF OF 75 ?G, DAILY
     Route: 048

REACTIONS (5)
  - Insomnia [Recovered/Resolved]
  - Decreased appetite [Unknown]
  - Vision blurred [Recovered/Resolved]
  - Malaise [Recovered/Resolved]
  - Anxiety [Recovered/Resolved]

NARRATIVE: CASE EVENT DATE: 20150410
